FAERS Safety Report 8114019-0 (Version None)
Quarter: 2012Q1

REPORT INFORMATION
  Report Type: 
  Country: None (occurrence: None)
  Receive Date: 20120203
  Receipt Date: 20120129
  Transmission Date: 20120608
  Serious: No
  Sender: FDA-Public Use
  Company Number: US-PFIZER INC-2012026368

PATIENT
  Sex: Male

DRUGS (2)
  1. SILDENAFIL CITRATE [Suspect]
     Dosage: 100 MG, UNK
  2. SILDENAFIL CITRATE [Suspect]
     Dosage: 50 MG, UNK

REACTIONS (1)
  - DRUG INEFFECTIVE [None]
